FAERS Safety Report 4452065-9 (Version None)
Quarter: 2004Q3

REPORT INFORMATION
  Report Type: 
  Country: None (occurrence: None)
  Receive Date: 20040915
  Receipt Date: 20040915
  Transmission Date: 20050211
  Serious: No
  Sender: FDA-Public Use
  Company Number: None

PATIENT
  Age: 37 Year
  Sex: Female
  Weight: 65.7716 kg

DRUGS (2)
  1. TAMBOCOR [Suspect]
     Indication: VENTRICULAR EXTRASYSTOLES
     Dosage: 50 MG PO
     Route: 048
  2. ATENOLOL [Concomitant]

REACTIONS (1)
  - VISUAL DISTURBANCE [None]
